FAERS Safety Report 25520110 (Version 4)
Quarter: 2025Q3

REPORT INFORMATION
  Report Type: Spontaneous
  Country: US (occurrence: US)
  Receive Date: 20250704
  Receipt Date: 20250923
  Transmission Date: 20251020
  Serious: No
  Sender: SANOFI AVENTIS
  Company Number: US-SA-2025SA188372

PATIENT
  Age: 31 Year
  Sex: Female

DRUGS (3)
  1. DUPIXENT [Suspect]
     Active Substance: DUPILUMAB
     Indication: Dermatitis atopic
     Route: 058
     Dates: start: 20250414, end: 20250414
  2. DUPIXENT [Suspect]
     Active Substance: DUPILUMAB
     Dosage: 300 MG, QOW
     Route: 058
     Dates: start: 20250614
  3. DOXYCYCLINE [Suspect]
     Active Substance: DOXYCYCLINE

REACTIONS (7)
  - Photosensitivity reaction [Unknown]
  - Dry skin [Recovering/Resolving]
  - Pain of skin [Recovering/Resolving]
  - Hypersensitivity [Unknown]
  - Rash [Unknown]
  - Injection site pain [Unknown]
  - Product use complaint [Unknown]

NARRATIVE: CASE EVENT DATE: 20250101
